FAERS Safety Report 10491360 (Version 1)
Quarter: 2014Q4

REPORT INFORMATION
  Report Type: Spontaneous
  Country: US (occurrence: US)
  Receive Date: 20141002
  Receipt Date: 20141002
  Transmission Date: 20150528
  Serious: No
  Sender: FDA-Public Use
  Company Number: US-GLAXOSMITHKLINE-A1051862A

PATIENT
  Age: 81 Year
  Sex: Female

DRUGS (9)
  1. ADVAIR HFA [Suspect]
     Active Substance: FLUTICASONE PROPIONATE\SALMETEROL XINAFOATE
     Indication: ASTHMA
     Dosage: 1PUFF TWICE PER DAY
     Route: 055
     Dates: start: 201309, end: 201311
  2. OMEPRAZOLE. [Concomitant]
     Active Substance: OMEPRAZOLE
  3. CRESTOR [Concomitant]
     Active Substance: ROSUVASTATIN CALCIUM
  4. METOPROLOL [Concomitant]
     Active Substance: METOPROLOL
  5. XARELTO [Concomitant]
     Active Substance: RIVAROXABAN
  6. DIVALPROEX [Concomitant]
     Active Substance: DIVALPROEX SODIUM
  7. PAROXETINE [Concomitant]
     Active Substance: PAROXETINE\PAROXETINE HYDROCHLORIDE
  8. TRIAMTERENE. [Concomitant]
     Active Substance: TRIAMTERENE
  9. FLOVENT [Suspect]
     Active Substance: FLUTICASONE PROPIONATE
     Indication: ASTHMA
     Dosage: 1PUFF TWICE PER DAY
     Route: 055
     Dates: start: 201311

REACTIONS (8)
  - Diarrhoea [Unknown]
  - Dyspnoea [Unknown]
  - Headache [Unknown]
  - Product quality issue [Unknown]
  - Gastrointestinal pain [Unknown]
  - Drug ineffective [Not Recovered/Not Resolved]
  - Dysphonia [Unknown]
  - Dizziness [Unknown]

NARRATIVE: CASE EVENT DATE: 201309
